FAERS Safety Report 5427111-6 (Version None)
Quarter: 2007Q3

REPORT INFORMATION
  Report Type: 
  Country: None (occurrence: None)
  Receive Date: 20070823
  Receipt Date: 20070823
  Transmission Date: 20080115
  Serious: Yes (Hospitalization)
  Sender: FDA-Public Use
  Company Number: None

PATIENT
  Sex: Male
  Weight: 78.3 kg

DRUGS (10)
  1. MYCOPHENOLATE MOFETIL [Suspect]
     Indication: ORGAN TRANSPLANT
     Dosage: 500 MG PO Q 12
     Dates: start: 20060616, end: 20061222
  2. PREDNISONE [Concomitant]
  3. TACROLIMUS [Concomitant]
  4. RANITIDINE [Concomitant]
  5. PRAVASTATIN [Concomitant]
  6. GABAPENTIN [Concomitant]
  7. FOLIC ACID [Concomitant]
  8. TIMOLOL OPTH [Concomitant]
  9. TEMAZEPAM [Concomitant]
  10. CALCIUM CARBONATE [Concomitant]

REACTIONS (2)
  - BLOOD CREATININE INCREASED [None]
  - DIARRHOEA [None]
